FAERS Safety Report 11636782 (Version 2)
Quarter: 2016Q1

REPORT INFORMATION
  Report Type: Spontaneous
  Country: US (occurrence: US)
  Receive Date: 20151016
  Receipt Date: 20160111
  Transmission Date: 20160525
  Serious: No
  Sender: FDA-Public Use
  Company Number: US-GALDERMA-US15007215

PATIENT
  Sex: Male

DRUGS (7)
  1. FISH OIL [Concomitant]
     Active Substance: FISH OIL
     Indication: BLOOD CHOLESTEROL
     Dosage: 1200 MG
     Route: 048
     Dates: start: 2015
  2. VITAMIN D [Concomitant]
     Active Substance: CHOLECALCIFEROL
     Indication: SUPPLEMENTATION THERAPY
     Dosage: 4000 MG
     Dates: start: 2012
  3. NASONEX [Concomitant]
     Active Substance: MOMETASONE FUROATE
     Indication: SEASONAL ALLERGY
     Dates: start: 2008
  4. DOXYCYCLINE. [Concomitant]
     Active Substance: DOXYCYCLINE
     Indication: ROSACEA
     Dosage: 50 MG
     Route: 048
     Dates: start: 2010
  5. AZELASTINE HYDROCHLORIDE. [Concomitant]
     Active Substance: AZELASTINE HYDROCHLORIDE
     Indication: SEASONAL ALLERGY
     Route: 048
     Dates: start: 2008
  6. SOOLANTRA [Suspect]
     Active Substance: IVERMECTIN
     Indication: ROSACEA
     Dosage: 1%
     Route: 061
     Dates: start: 20150518, end: 20150917
  7. LOVASTATIN. [Concomitant]
     Active Substance: LOVASTATIN
     Indication: BLOOD CHOLESTEROL
     Dosage: 20 MG
     Route: 048
     Dates: start: 2014

REACTIONS (5)
  - Gingival swelling [Recovered/Resolved]
  - Gingival bleeding [Recovered/Resolved]
  - Gingival hyperplasia [Recovered/Resolved]
  - Gingival recession [Recovered/Resolved]
  - Gingival pain [Recovered/Resolved]
